FAERS Safety Report 9889695 (Version 2)
Quarter: 2014Q1

REPORT INFORMATION
  Report Type: Spontaneous
  Country: US (occurrence: US)
  Receive Date: 20140211
  Receipt Date: 20140228
  Transmission Date: 20141002
  Serious: Yes (Hospitalization, Other)
  Sender: FDA-Public Use
  Company Number: US-PFIZER INC-2014036034

PATIENT
  Age: 55 Year
  Sex: Female
  Weight: 53.06 kg

DRUGS (7)
  1. CHANTIX [Suspect]
     Indication: SMOKING CESSATION THERAPY
     Dosage: UNK
  2. CHANTIX [Suspect]
     Dosage: 0.5 MG-1 MG, 2 TIMES A DAY
     Route: 048
     Dates: start: 20131226
  3. CHANTIX [Suspect]
     Dosage: UNK
     Dates: start: 20140201, end: 20140206
  4. IMITREX [Concomitant]
     Indication: MIGRAINE
     Dosage: UNK
  5. MORPHINE [Concomitant]
     Dosage: 60 MG EVERY 12 HOURS
  6. MORPHINE [Concomitant]
     Dosage: 30 MG, Q8H
     Route: 048
  7. XANAX [Concomitant]
     Dosage: 1 MG, TID

REACTIONS (7)
  - Hypersensitivity [Unknown]
  - Throat tightness [Unknown]
  - Migraine [Unknown]
  - Activities of daily living impaired [Unknown]
  - Movement disorder [Unknown]
  - Hypersomnia [Unknown]
  - Headache [Recovered/Resolved]
